FAERS Safety Report 8708703 (Version 2)
Quarter: 2012Q4

REPORT INFORMATION
  Report Type: 
  Country: FR (occurrence: FR)
  Receive Date: 20120806
  Receipt Date: 20121018
  Transmission Date: 20130627
  Serious: Yes (Hospitalization)
  Sender: FDA-Public Use
  Company Number: FR-ELI_LILLY_AND_COMPANY-FR201207008656

PATIENT
  Age: 78 Year
  Sex: Female
  Weight: 55.5 kg

DRUGS (2)
  1. FORSTEO [Suspect]
     Indication: OSTEOPOROSIS
     Dosage: 20 ug, qd
     Route: 058
     Dates: start: 20120223, end: 20120705
  2. FORSTEO [Suspect]
     Dosage: 20 ug, qd
     Route: 058
     Dates: start: 20120720

REACTIONS (2)
  - Patella fracture [Recovered/Resolved]
  - Fall [Recovered/Resolved]
